FAERS Safety Report 15651166 (Version 1)
Quarter: 2018Q4

REPORT INFORMATION
  Report Type: Spontaneous
  Country: ES (occurrence: ES)
  Receive Date: 20181123
  Receipt Date: 20181123
  Transmission Date: 20190205
  Serious: Yes (Other)
  Sender: FDA-Public Use
  Company Number: ES-ASTRAZENECA-2018SF51217

PATIENT
  Age: 19 Year
  Sex: Female

DRUGS (4)
  1. DEXTROMETHORPHAN [Interacting]
     Active Substance: DEXTROMETHORPHAN
     Route: 048
     Dates: start: 201811, end: 20181104
  2. EUTIROX [Concomitant]
     Active Substance: LEVOTHYROXINE SODIUM
     Indication: HYPOTHYROIDISM
     Dosage: 100.0MG UNKNOWN
     Route: 048
  3. QUETIAPINE FUMARATE. [Suspect]
     Active Substance: QUETIAPINE FUMARATE
     Indication: BORDERLINE PERSONALITY DISORDER
     Dosage: 100.0MG UNKNOWN
     Route: 048
  4. CYMBALTA [Interacting]
     Active Substance: DULOXETINE HYDROCHLORIDE
     Indication: BORDERLINE PERSONALITY DISORDER
     Dosage: 30.0MG UNKNOWN
     Route: 048

REACTIONS (5)
  - Tremor [Recovering/Resolving]
  - Palpitations [Unknown]
  - Dizziness [Recovering/Resolving]
  - Nausea [Unknown]
  - Chest pain [Recovered/Resolved]

NARRATIVE: CASE EVENT DATE: 20181103
